FAERS Safety Report 5448408-X (Version None)
Quarter: 2007Q3

REPORT INFORMATION
  Report Type: 
  Country: None (occurrence: None)
  Receive Date: 20070906
  Receipt Date: 20070828
  Transmission Date: 20080115
  Serious: No
  Sender: FDA-Public Use
  Company Number: TPA2007A01826

PATIENT
  Age: 57 Year
  Sex: Female
  Weight: 68.0396 kg

DRUGS (5)
  1. ROZEREM [Suspect]
     Indication: INSOMNIA
     Dosage: 4 MG, HS, PER ORAL, 4 MG, HS, PER ORAL
     Route: 048
     Dates: start: 20070827, end: 20070827
  2. ROZEREM [Suspect]
     Indication: INSOMNIA
     Dosage: 4 MG, HS, PER ORAL, 4 MG, HS, PER ORAL
     Route: 048
     Dates: start: 20070828, end: 20070828
  3. ROZEREM [Suspect]
     Indication: INSOMNIA
     Dosage: 4 MG, HS, PER ORAL, 4 MG, HS, PER ORAL
     Route: 048
     Dates: start: 20070829
  4. PATANOL [Concomitant]
  5. FLONASE [Concomitant]

REACTIONS (4)
  - DIZZINESS [None]
  - INITIAL INSOMNIA [None]
  - SOMNOLENCE [None]
  - UNDERDOSE [None]
